FAERS Safety Report 11166944 (Version 1)
Quarter: 2015Q2

REPORT INFORMATION
  Report Type: Spontaneous
  Country: CN (occurrence: CN)
  Receive Date: 20150605
  Receipt Date: 20150605
  Transmission Date: 20150821
  Serious: Yes (Hospitalization)
  Sender: FDA-Public Use
  Company Number: CN-BRISTOL-MYERS SQUIBB COMPANY-BMS-2015-027142

PATIENT
  Age: 37 Year
  Sex: Male
  Weight: 69 kg

DRUGS (2)
  1. METFORMIN HYDROCHLORIDE. [Suspect]
     Active Substance: METFORMIN HYDROCHLORIDE
     Indication: TYPE 2 DIABETES MELLITUS
     Dosage: UNK
     Route: 065
     Dates: start: 2013
  2. GLICLAZIDE [Concomitant]
     Active Substance: GLICLAZIDE
     Indication: BLOOD GLUCOSE DECREASED
     Dosage: 80 MG, BID
     Route: 048

REACTIONS (2)
  - Diabetic retinopathy [Unknown]
  - Diabetic neuropathy [Unknown]
